FAERS Safety Report 8935659 (Version 1)
Quarter: 2012Q4

REPORT INFORMATION
  Report Type: 
  Country: GB (occurrence: GB)
  Receive Date: 20121130
  Receipt Date: 20121130
  Transmission Date: 20130627
  Serious: Yes (Other)
  Sender: FDA-Public Use
  Company Number: GB-PFIZER INC-2012299124

PATIENT
  Age: 44 Year
  Sex: Female

DRUGS (3)
  1. SERTRALINE HYDROCHLORIDE [Suspect]
     Dosage: 25 mg, UNK
  2. XALATAN [Concomitant]
  3. TIMOLOL [Concomitant]

REACTIONS (7)
  - Drug withdrawal syndrome [Unknown]
  - Confusional state [Unknown]
  - Disorientation [Unknown]
  - Depressed mood [Unknown]
  - Anxiety [Unknown]
  - Headache [Unknown]
  - Hyperhidrosis [Unknown]
